FAERS Safety Report 4806208-5 (Version None)
Quarter: 2005Q4

REPORT INFORMATION
  Report Type: 
  Country: None (occurrence: None)
  Receive Date: 20051021
  Receipt Date: 20050912
  Transmission Date: 20060501
  Serious: Yes (Hospitalization)
  Sender: FDA-Public Use
  Company Number: IL-MERCK-0509ISR00006

PATIENT
  Age: 78 Year
  Sex: Male

DRUGS (9)
  1. VIOXX [Suspect]
     Indication: PELVIC PAIN
     Route: 048
     Dates: start: 20020314, end: 20040901
  2. SIMVASTATIN [Concomitant]
     Indication: HYPERLIPIDAEMIA
     Route: 048
  3. ASPIRIN [Concomitant]
     Route: 048
  4. ISOSORBIDE MONONITRATE [Concomitant]
     Route: 048
  5. CLOPIDOGREL BISULFATE [Concomitant]
     Route: 048
  6. BETAHISTINE HYDROCHLORIDE [Concomitant]
     Route: 048
  7. PROPAFENONE HYDROCHLORIDE [Concomitant]
     Route: 048
  8. NITROFURANTOIN [Concomitant]
     Route: 048
  9. BROTIZOLAM [Concomitant]
     Route: 048

REACTIONS (4)
  - ARTERIOSCLEROSIS [None]
  - CHEST PAIN [None]
  - ELECTROCARDIOGRAM CHANGE [None]
  - GENERAL PHYSICAL HEALTH DETERIORATION [None]
